FAERS Safety Report 7936542-1 (Version None)
Quarter: 2011Q4

REPORT INFORMATION
  Report Type: 
  Country: None (occurrence: None)
  Receive Date: 20111123
  Receipt Date: 20110901
  Transmission Date: 20120403
  Serious: No
  Sender: FDA-Public Use
  Company Number: US-BAYER-2011-087701

PATIENT
  Age: 69 Year
  Sex: Male
  Weight: 125 kg

DRUGS (1)
  1. ALEVE (CAPLET) [Suspect]
     Dosage: 2 DF, QD
     Route: 048
     Dates: start: 20090901

REACTIONS (1)
  - NO ADVERSE EVENT [None]
